FAERS Safety Report 13667506 (Version 1)
Quarter: 2017Q2

REPORT INFORMATION
  Report Type: Spontaneous
  Country: FR (occurrence: FR)
  Receive Date: 20170620
  Receipt Date: 20170620
  Transmission Date: 20170830
  Serious: Yes (Hospitalization)
  Sender: FDA-Public Use
  Company Number: FR-009507513-1706FRA006455

PATIENT
  Age: 91 Year
  Sex: Female
  Weight: 57.9 kg

DRUGS (14)
  1. BROMAZEPAM [Concomitant]
     Active Substance: BROMAZEPAM
     Dosage: 1.5 DF, PRN
     Route: 048
     Dates: end: 201610
  2. DIGOXINE NATIVELLE [Concomitant]
     Active Substance: DIGOXIN
     Dosage: 1 DF, QD
     Route: 048
     Dates: start: 201610
  3. JANUMET [Suspect]
     Active Substance: METFORMIN HYDROCHLORIDE\SITAGLIPTIN PHOSPHATE
     Dosage: 1 DF, BID
     Route: 048
     Dates: end: 20161021
  4. TRIMEBUTINE [Concomitant]
     Active Substance: TRIMEBUTINE
     Dosage: 100 MG AS REQUIRED
     Route: 048
     Dates: end: 201610
  5. ZOLPIDEM [Concomitant]
     Active Substance: ZOLPIDEM\ZOLPIDEM TARTRATE
     Dosage: 10 MG, QD
     Route: 048
  6. CETORNAN [Concomitant]
     Dosage: 1 DF (5 G), BID
     Route: 048
  7. MOLSIDOMINE [Concomitant]
     Active Substance: MOLSIDOMINE
     Dosage: 2 MG, TID
     Route: 048
  8. FUROSEMIDE. [Concomitant]
     Active Substance: FUROSEMIDE
     Dosage: 60 MG, QD
     Route: 048
  9. PREVISCAN [Concomitant]
     Active Substance: FLUINDIONE
     Dosage: 0.5 DF, QD
     Route: 048
  10. KETUM [Concomitant]
     Active Substance: KETOPROFEN
     Dosage: UNK
     Route: 061
     Dates: end: 201610
  11. CYANOCOBALAMIN. [Concomitant]
     Active Substance: CYANOCOBALAMIN
     Dosage: 250 MICROGRAM, QD
     Route: 048
  12. ZALDIAR [Suspect]
     Active Substance: ACETAMINOPHEN\TRAMADOL HYDROCHLORIDE
     Dosage: UNK
     Route: 048
     Dates: end: 20161021
  13. TRIVASTAL [Concomitant]
     Active Substance: PIRIBEDIL
     Dosage: 1 DF (50 MG), QD
     Route: 048
  14. CARDENSIEL [Concomitant]
     Active Substance: BISOPROLOL FUMARATE
     Dosage: 1 DF (10 MG), QD
     Route: 048

REACTIONS (1)
  - Weight decreased [Not Recovered/Not Resolved]

NARRATIVE: CASE EVENT DATE: 20161020
